FAERS Safety Report 14918249 (Version 1)
Quarter: 2018Q2

REPORT INFORMATION
  Report Type: Spontaneous
  Country: JP (occurrence: JP)
  Receive Date: 20180521
  Receipt Date: 20180521
  Transmission Date: 20180711
  Serious: Yes (Life-Threatening)
  Sender: FDA-Public Use
  Company Number: PHHY2018JP002841

PATIENT

DRUGS (4)
  1. DOCETAXEL. [Suspect]
     Active Substance: DOCETAXEL
     Indication: NON-SMALL CELL LUNG CANCER METASTATIC
     Dosage: 60 MG/M2, QW3 (1 HOUR, ON DAY 2)
     Route: 042
  2. CISPLATIN. [Suspect]
     Active Substance: CISPLATIN
     Indication: NON-SMALL CELL LUNG CANCER METASTATIC
     Dosage: 75 MG/M2, QW3 (2 HOUR, ON DAY 2)
     Route: 042
  3. GRANULOCYTE COLONY STIMULATING FACTOR [Suspect]
     Active Substance: GRANULOCYTE COLONY-STIMULATING FACTOR NOS
     Indication: PROPHYLAXIS
     Dosage: UNK
     Route: 065
  4. OMBRABULIN [Suspect]
     Active Substance: OMBRABULIN
     Indication: NON-SMALL CELL LUNG CANCER METASTATIC
     Dosage: 15.5 MG/M2, QW3  (30 MIN, ON DAY 1)
     Route: 042

REACTIONS (1)
  - Lymphangiosis carcinomatosa [Unknown]
